FAERS Safety Report 7074857-2 (Version None)
Quarter: 2010Q4

REPORT INFORMATION
  Report Type: 
  Country: None (occurrence: None)
  Receive Date: 20101029
  Receipt Date: 20101019
  Transmission Date: 20110411
  Serious: Yes (Other)
  Sender: FDA-Public Use
  Company Number: PHHY2010JP68876

PATIENT
  Age: 74 Year
  Sex: Male

DRUGS (4)
  1. AREDIA [Suspect]
     Indication: MULTIPLE MYELOMA
     Dosage: UNK
     Route: 042
  2. ZOMETA [Suspect]
     Indication: MULTIPLE MYELOMA
     Dosage: UNK
     Route: 042
  3. ANTINEOPLASTIC AGENTS [Concomitant]
  4. STEROIDS NOS [Concomitant]

REACTIONS (2)
  - MOUTH ULCERATION [None]
  - OSTEONECROSIS OF JAW [None]
